FAERS Safety Report 8453243-4 (Version None)
Quarter: 2012Q2

REPORT INFORMATION
  Report Type: 
  Country: None (occurrence: None)
  Receive Date: 20120620
  Receipt Date: 20120510
  Transmission Date: 20120825
  Serious: No
  Sender: FDA-Public Use
  Company Number: US-VERTEX PHARMACEUTICALS INC.-AE-2012-006929

PATIENT
  Sex: Female
  Weight: 70.37 kg

DRUGS (6)
  1. XANAX [Concomitant]
  2. PEGASYS [Concomitant]
     Indication: HEPATITIS C
     Dates: start: 20120507
  3. INCIVEK [Suspect]
     Indication: HEPATITIS C
     Route: 048
     Dates: start: 20120507
  4. RIBAVIRIN [Concomitant]
     Indication: HEPATITIS C
     Dates: start: 20120507
  5. OXYCODONE HCL [Concomitant]
  6. SOMA [Concomitant]

REACTIONS (6)
  - STRESS [None]
  - NAUSEA [None]
  - DYSARTHRIA [None]
  - MIOSIS [None]
  - SOMNOLENCE [None]
  - FREQUENT BOWEL MOVEMENTS [None]
